FAERS Safety Report 8415514-7 (Version None)
Quarter: 2012Q2

REPORT INFORMATION
  Report Type: 
  Country: None (occurrence: None)
  Receive Date: 20120606
  Receipt Date: 20120529
  Transmission Date: 20120825
  Serious: Yes (Hospitalization)
  Sender: FDA-Public Use
  Company Number: US-BAYER-2012-054939

PATIENT
  Age: 36 Year
  Sex: Female

DRUGS (4)
  1. YAZ [Suspect]
     Dosage: UNK
     Dates: start: 20050804
  2. METRONIDAZOLE [Concomitant]
     Dosage: UNK
     Dates: start: 20100824
  3. YASMIN [Suspect]
     Dosage: UNK
     Dates: start: 20050804, end: 20090902
  4. KLOR-CON M20 [Concomitant]
     Dosage: UNK
     Dates: start: 20100817

REACTIONS (4)
  - CEREBRAL INFARCTION [None]
  - SPLENIC INFARCTION [None]
  - GAIT DISTURBANCE [None]
  - ABDOMINAL PAIN [None]
